FAERS Safety Report 19995406 (Version 1)
Quarter: 2021Q4

REPORT INFORMATION
  Report Type: Spontaneous
  Country: US (occurrence: US)
  Receive Date: 20211026
  Receipt Date: 20211026
  Transmission Date: 20220303
  Serious: Yes (Hospitalization)
  Sender: FDA-Public Use
  Company Number: None

PATIENT
  Age: 52 Year
  Sex: Female
  Weight: 76.5 kg

DRUGS (3)
  1. BAMLANIVIMAB [Suspect]
     Active Substance: BAMLANIVIMAB
     Indication: COVID-19
     Route: 040
     Dates: start: 20211019, end: 20211019
  2. ETESEVIMAB [Suspect]
     Active Substance: ETESEVIMAB
     Indication: COVID-19
     Route: 040
     Dates: start: 20211019, end: 20211019
  3. sodium chloride 0.9 % [Concomitant]
     Dates: start: 20211019, end: 20211019

REACTIONS (12)
  - Dyspnoea [None]
  - Fatigue [None]
  - Muscular weakness [None]
  - Pyrexia [None]
  - Nausea [None]
  - Headache [None]
  - Myalgia [None]
  - Hypoalbuminaemia [None]
  - Leukocytosis [None]
  - Lung infiltration [None]
  - Nitrite urine present [None]
  - Brain natriuretic peptide increased [None]

NARRATIVE: CASE EVENT DATE: 20211021
